FAERS Safety Report 7006744-X (Version None)
Quarter: 2010Q3

REPORT INFORMATION
  Report Type: 
  Country: None (occurrence: None)
  Receive Date: 20100922
  Receipt Date: 20100915
  Transmission Date: 20110219
  Serious: No
  Sender: FDA-Public Use
  Company Number: US-BIOGENIDEC-2010BI009991

PATIENT
  Age: 52 Year
  Sex: Female

DRUGS (5)
  1. TYSABRI [Suspect]
     Indication: MULTIPLE SCLEROSIS
     Route: 042
     Dates: start: 20090611
  2. AVONEX [Concomitant]
     Indication: MULTIPLE SCLEROSIS
     Route: 030
     Dates: start: 20020201
  3. VITAMIN B6 [Concomitant]
     Indication: SUPPLEMENTATION THERAPY
     Dates: start: 20100701
  4. VITAMIN B-12 [Concomitant]
     Indication: SUPPLEMENTATION THERAPY
     Dates: start: 20100701
  5. AMPYRA [Concomitant]
     Indication: GAIT DISTURBANCE
     Dates: start: 20100601, end: 20100801

REACTIONS (4)
  - GASTROINTESTINAL MOTILITY DISORDER [None]
  - IMPAIRED GASTRIC EMPTYING [None]
  - NASOPHARYNGITIS [None]
  - WEIGHT DECREASED [None]
